FAERS Safety Report 7605417-X (Version None)
Quarter: 2011Q3

REPORT INFORMATION
  Report Type: 
  Country: None (occurrence: None)
  Receive Date: 20110713
  Receipt Date: 20110708
  Transmission Date: 20111222
  Serious: Yes (Hospitalization, Other)
  Sender: FDA-Public Use
  Company Number: US-AMGEN-USASP2011018459

PATIENT
  Sex: Male

DRUGS (2)
  1. NPLATE [Suspect]
     Indication: IDIOPATHIC THROMBOCYTOPENIC PURPURA
     Dosage: 4.6 A?G/KG, UNK
     Dates: start: 20110211
  2. DANAZOL [Concomitant]

REACTIONS (3)
  - DRUG INEFFECTIVE [None]
  - IMMUNOSUPPRESSION [None]
  - HOSPITALISATION [None]
